FAERS Safety Report 26098966 (Version 1)
Quarter: 2025Q4

REPORT INFORMATION
  Report Type: Report from Study
  Country: US (occurrence: US)
  Receive Date: 20251127
  Receipt Date: 20251127
  Transmission Date: 20260119
  Serious: Yes (Hospitalization, Other)
  Sender: EMD SERONO INC
  Company Number: US-Merck Healthcare KGaA-2025060072

PATIENT
  Sex: Male

DRUGS (1)
  1. REBIF [Suspect]
     Active Substance: INTERFERON BETA-1A
     Indication: Multiple sclerosis
     Dates: start: 20060622

REACTIONS (8)
  - Urinary retention [Unknown]
  - Drug abuse [Unknown]
  - Infection [Unknown]
  - Prostatomegaly [Unknown]
  - Illness [Unknown]
  - Cognitive disorder [Unknown]
  - Frontotemporal dementia [Unknown]
  - Abnormal behaviour [Unknown]
